FAERS Safety Report 8374024-6 (Version None)
Quarter: 2012Q2

REPORT INFORMATION
  Report Type: 
  Country: None (occurrence: None)
  Receive Date: 20120517
  Receipt Date: 20120517
  Transmission Date: 20120825
  Serious: Yes (Other)
  Sender: FDA-Public Use
  Company Number: None

PATIENT
  Age: 78 Year
  Sex: Male
  Weight: 75.7507 kg

DRUGS (3)
  1. LIPITOR [Suspect]
  2. ZOCOR [Suspect]
  3. RAZADYNE [Concomitant]

REACTIONS (2)
  - AMNESIA [None]
  - DEMENTIA [None]
